FAERS Safety Report 10790933 (Version 2)
Quarter: 2015Q1

REPORT INFORMATION
  Report Type: Spontaneous
  Country: US (occurrence: US)
  Receive Date: 20150212
  Receipt Date: 20150220
  Transmission Date: 20150721
  Serious: Yes (Hospitalization, Other)
  Sender: FDA-Public Use
  Company Number: US-GILEAD-2015-0136082

PATIENT
  Age: 89 Year
  Sex: Female
  Weight: 86 kg

DRUGS (7)
  1. ASPIRIN 81 [Concomitant]
     Route: 048
  2. METOPROLOL TARTRATE. [Concomitant]
     Active Substance: METOPROLOL TARTRATE
     Route: 048
  3. ZYDELIG [Suspect]
     Active Substance: IDELALISIB
     Indication: B-CELL LYMPHOMA
     Dosage: 100 MG, BID
     Route: 048
     Dates: start: 201410, end: 20150121
  4. IBUPROFEN. [Concomitant]
     Active Substance: IBUPROFEN
     Route: 048
  5. CARAFATE [Concomitant]
     Active Substance: SUCRALFATE
     Route: 048
  6. ONDANSETRON [Concomitant]
     Active Substance: ONDANSETRON
     Route: 048
  7. DIGOXIN. [Concomitant]
     Active Substance: DIGOXIN
     Route: 048

REACTIONS (9)
  - Urinary tract infection [Unknown]
  - Neutrophil count decreased [Unknown]
  - Leukopenia [Unknown]
  - Asthenia [Unknown]
  - Disease progression [Not Recovered/Not Resolved]
  - Lymphadenopathy mediastinal [Not Recovered/Not Resolved]
  - Pancreatitis acute [Recovered/Resolved]
  - Cough [Unknown]
  - Conjunctivitis [Unknown]

NARRATIVE: CASE EVENT DATE: 201412
